FAERS Safety Report 16141696 (Version 1)
Quarter: 2019Q2

REPORT INFORMATION
  Report Type: Spontaneous
  Country: US (occurrence: US)
  Receive Date: 20190330
  Receipt Date: 20190330
  Transmission Date: 20190711
  Serious: No
  Sender: FDA-Public Use
  Company Number: None

PATIENT
  Age: 52 Year
  Sex: Female
  Weight: 60.75 kg

DRUGS (1)
  1. LAURA MERCIER TINTED MOISTURIZER BROAD SPECTRUM SPF 20 SUNSCREEN - NATURAL [Suspect]
     Active Substance: AVOBENZONE\OCTINOXATE
     Indication: DRY SKIN PROPHYLAXIS
     Dosage: ?          QUANTITY:1 2;?
     Route: 061
     Dates: start: 20190212, end: 20190328

REACTIONS (5)
  - Swelling of eyelid [None]
  - Photosensitivity reaction [None]
  - Hypersensitivity [None]
  - Lacrimation increased [None]
  - Ocular hyperaemia [None]

NARRATIVE: CASE EVENT DATE: 20190328
